FAERS Safety Report 14623101 (Version 2)
Quarter: 2018Q2

REPORT INFORMATION
  Report Type: Spontaneous
  Country: US (occurrence: US)
  Receive Date: 20180311
  Receipt Date: 20180521
  Transmission Date: 20180711
  Serious: Yes (Hospitalization, Other)
  Sender: FDA-Public Use
  Company Number: PHEH2018US008768

PATIENT
  Age: 66 Year
  Sex: Male

DRUGS (3)
  1. TASIGNA [Suspect]
     Active Substance: NILOTINIB
     Dosage: 300 MG, BID
     Route: 048
     Dates: start: 20131203, end: 20140304
  2. TASIGNA [Suspect]
     Active Substance: NILOTINIB
     Dosage: 300 MG, BID
     Route: 048
     Dates: start: 20110811, end: 201311
  3. TASIGNA [Suspect]
     Active Substance: NILOTINIB
     Indication: CHRONIC MYELOID LEUKAEMIA
     Dosage: 300 MG, BID
     Route: 048
     Dates: start: 20100810, end: 20110810

REACTIONS (53)
  - Hepatitis B [Unknown]
  - Acute kidney injury [Unknown]
  - Rib fracture [Unknown]
  - Dizziness [Unknown]
  - Eye pain [Unknown]
  - Hypoaesthesia [Unknown]
  - Splenic rupture [Unknown]
  - Left ventricular hypertrophy [Unknown]
  - Onychomycosis [Unknown]
  - Tendon injury [Unknown]
  - Nystagmus [Unknown]
  - Gastrooesophageal reflux disease [Unknown]
  - Pain in extremity [Unknown]
  - Dupuytren^s contracture [Unknown]
  - Angina pectoris [Unknown]
  - Joint stiffness [Unknown]
  - Chest discomfort [Unknown]
  - Headache [Unknown]
  - Cough [Unknown]
  - Back pain [Unknown]
  - Insomnia [Unknown]
  - Hypoxia [Unknown]
  - Cardiomegaly [Unknown]
  - Essential hypertension [Unknown]
  - Ankle fracture [Unknown]
  - Pelvic pain [Unknown]
  - Sleep apnoea syndrome [Unknown]
  - Thrombocytosis [Unknown]
  - Road traffic accident [Unknown]
  - Dyspnoea [Unknown]
  - Cerebellar stroke [Unknown]
  - Delirium [Recovered/Resolved]
  - Tendon rupture [Unknown]
  - Synovial cyst [Unknown]
  - Symphysiolysis [Unknown]
  - Fatigue [Unknown]
  - Nausea [Unknown]
  - Leukocytosis [Unknown]
  - Hyperglycaemia [Unknown]
  - Cardiac murmur [Unknown]
  - Cerebrovascular accident [Unknown]
  - Craniocerebral injury [Unknown]
  - Carpal tunnel syndrome [Unknown]
  - Cerumen impaction [Unknown]
  - Pain [Unknown]
  - Emotional distress [Unknown]
  - Palpitations [Unknown]
  - Hypertension [Unknown]
  - Amnesia [Unknown]
  - Chronic kidney disease [Not Recovered/Not Resolved]
  - Pelvic fracture [Unknown]
  - Hyperlipidaemia [Unknown]
  - Night sweats [Unknown]

NARRATIVE: CASE EVENT DATE: 20120216
